FAERS Safety Report 16718199 (Version 1)
Quarter: 2019Q3

REPORT INFORMATION
  Report Type: Spontaneous
  Country: GB (occurrence: GB)
  Receive Date: 20190820
  Receipt Date: 20190820
  Transmission Date: 20191005
  Serious: Yes (Other)
  Sender: FDA-Public Use
  Company Number: GB-AMGEN-GBRSP2019131899

PATIENT
  Age: 49 Year
  Sex: Female

DRUGS (1)
  1. ENBREL [Suspect]
     Active Substance: ETANERCEPT
     Indication: PSORIATIC ARTHROPATHY
     Dosage: 50 MILLIGRAM, QWK
     Route: 065

REACTIONS (11)
  - Blood count abnormal [Unknown]
  - Haemoptysis [Unknown]
  - Weight decreased [Unknown]
  - Cholelithiasis [Unknown]
  - Chronic gastritis [Unknown]
  - Gallbladder disorder [Unknown]
  - Decreased appetite [Unknown]
  - Anaemia [Unknown]
  - Inflammation [Unknown]
  - Dizziness [Unknown]
  - Fatigue [Unknown]
